FAERS Safety Report 21258144 (Version 14)
Quarter: 2023Q4

REPORT INFORMATION
  Report Type: Report from Study
  Country: US (occurrence: US)
  Receive Date: 20220826
  Receipt Date: 20231218
  Transmission Date: 20240110
  Serious: No
  Sender: FDA-Public Use
  Company Number: US-NOVARTISTESTPH-NVSC2022US187393

PATIENT
  Age: 60 Year
  Sex: Female

DRUGS (1)
  1. KESIMPTA [Suspect]
     Active Substance: OFATUMUMAB
     Indication: Product used for unknown indication
     Dosage: 20 MG, QMO
     Route: 058
     Dates: start: 20220718

REACTIONS (8)
  - Abdominal discomfort [Recovered/Resolved]
  - Limb discomfort [Unknown]
  - Temperature intolerance [Unknown]
  - Balance disorder [Recovering/Resolving]
  - Asthenia [Recovering/Resolving]
  - Fatigue [Recovered/Resolved]
  - Influenza [Recovered/Resolved]
  - Drug ineffective [Unknown]

NARRATIVE: CASE EVENT DATE: 20220718
